FAERS Safety Report 6821092-6 (Version None)
Quarter: 2010Q3

REPORT INFORMATION
  Report Type: 
  Country: None (occurrence: None)
  Receive Date: 20100707
  Receipt Date: 20071113
  Transmission Date: 20110219
  Serious: No
  Sender: FDA-Public Use
  Company Number: US-PFIZER INC-2007081005

PATIENT
  Sex: Male
  Weight: 83.91 kg

DRUGS (2)
  1. ZOLOFT [Suspect]
     Indication: ANXIETY
     Route: 048
     Dates: start: 20070921
  2. XANAX [Concomitant]

REACTIONS (6)
  - ANXIETY [None]
  - CHEST DISCOMFORT [None]
  - CHEST PAIN [None]
  - HYPOAESTHESIA FACIAL [None]
  - INSOMNIA [None]
  - PARAESTHESIA [None]
